FAERS Safety Report 7773209 (Version 9)
Quarter: 2016Q2

REPORT INFORMATION
  Report Type: Report from Study
  Country: CA (occurrence: CA)
  Receive Date: 20110125
  Receipt Date: 20160510
  Transmission Date: 20160815
  Serious: Yes (Hospitalization, Other)
  Sender: FDA-Public Use
  Company Number: PHHY2011CA03345

PATIENT
  Age: 52 Year
  Sex: Female

DRUGS (1)
  1. SANDOSTATIN LAR DEPOT [Suspect]
     Active Substance: OCTREOTIDE ACETATE
     Indication: SHORT-BOWEL SYNDROME
     Dosage: 10 MG, QMO (ONCE A MONTH)
     Route: 030
     Dates: start: 20071115

REACTIONS (9)
  - Intestinal perforation [Recovering/Resolving]
  - Arthralgia [Unknown]
  - Pancreatic cyst [Recovered/Resolved]
  - Superficial injury of eye [Recovering/Resolving]
  - Product use issue [Unknown]
  - Blood pressure decreased [Unknown]
  - Abdominal pain [Unknown]
  - Abscess oral [Recovered/Resolved]
  - Iritis [Recovering/Resolving]

NARRATIVE: CASE EVENT DATE: 20140514
